FAERS Safety Report 24905230 (Version 2)
Quarter: 2025Q1

REPORT INFORMATION
  Report Type: Spontaneous
  Country: US (occurrence: US)
  Receive Date: 20250130
  Receipt Date: 20250326
  Transmission Date: 20250408
  Serious: No
  Sender: PFIZER
  Company Number: US-PFIZER INC-PV202500011287

PATIENT
  Age: 50 Year
  Sex: Female
  Weight: 70.31 kg

DRUGS (2)
  1. NURTEC ODT [Suspect]
     Active Substance: RIMEGEPANT SULFATE
     Indication: Migraine prophylaxis
     Dosage: 75 MG, ALTERNATE DAY
     Route: 048
     Dates: start: 2023
  2. NURTEC ODT [Suspect]
     Active Substance: RIMEGEPANT SULFATE
     Dosage: 75 MG, ALTERNATE DAY
     Route: 048
     Dates: start: 2023

REACTIONS (3)
  - Drug ineffective [Unknown]
  - Migraine [Unknown]
  - Therapeutic product effect delayed [Unknown]
